FAERS Safety Report 14966724 (Version 2)
Quarter: 2018Q3

REPORT INFORMATION
  Report Type: Report from Study
  Country: DE (occurrence: DE)
  Receive Date: 20180604
  Receipt Date: 20180706
  Transmission Date: 20181010
  Serious: Yes (Other)
  Sender: FDA-Public Use
  Company Number: DE-VELOXIS PHARMACEUTICALS, INC.-2018VELDE0969

PATIENT
  Age: 37 Year
  Sex: Female

DRUGS (11)
  1. ENVARSUS XR [Suspect]
     Active Substance: TACROLIMUS
     Indication: IMMUNOSUPPRESSANT DRUG THERAPY
  2. HYDROMORPHON AL [Concomitant]
     Active Substance: HYDROMORPHONE HYDROCHLORIDE
     Indication: MYOPATHY
  3. CELLCEPT [Concomitant]
     Active Substance: MYCOPHENOLATE MOFETIL\MYCOPHENOLATE MOFETIL HYDROCHLORIDE
     Indication: IMMUNOSUPPRESSANT DRUG THERAPY
     Dosage: 500 MG, BID
     Route: 048
  4. EUTHYROX [Concomitant]
     Active Substance: LEVOTHYROXINE SODIUM
     Indication: HYPOTHYROIDISM
     Dosage: 100 ?G, 1?0?0
  5. VIGANTOLETTEN [Concomitant]
     Active Substance: CHOLECALCIFEROL
     Indication: OSTEOPOROSIS
     Dosage: 1000 IE, 1?0?1, TABLET
  6. URSOFALK [Concomitant]
     Active Substance: URSODIOL
     Indication: BILIARY TRACT DISORDER
     Dosage: 250 MG, 1?1?1
  7. ENVARSUS XR [Suspect]
     Active Substance: TACROLIMUS
     Indication: LIVER TRANSPLANT
     Dosage: 3 MG, QD
     Route: 048
     Dates: start: 20180326, end: 20180504
  8. PANTOPRAZOL                        /01263201/ [Concomitant]
     Active Substance: PANTOPRAZOLE
     Indication: PROPHYLAXIS AGAINST GASTROINTESTINAL ULCER
     Dosage: 20 MG, 1?0?0, TABLET
  9. MAGNESIUM [Concomitant]
     Active Substance: MAGNESIUM
     Indication: NEUROPATHY PERIPHERAL
     Dosage: 300 MG, 1?0?1, TABLET
  10. PREGABALIN. [Concomitant]
     Active Substance: PREGABALIN
     Indication: NEUROPATHY PERIPHERAL
     Dosage: 300 MG, 1?0?1, TABLET
  11. HYDROMORPHON AL [Concomitant]
     Active Substance: HYDROMORPHONE HYDROCHLORIDE
     Indication: NEUROPATHY PERIPHERAL
     Dosage: 1.3 UNK, 1?0?1, TABLET

REACTIONS (14)
  - Vision blurred [Unknown]
  - Headache [Unknown]
  - Abdominal distension [Unknown]
  - Haemorrhage [Unknown]
  - Back pain [Unknown]
  - Nightmare [Recovered/Resolved]
  - Abdominal pain [Unknown]
  - Nausea [Unknown]
  - Malaise [Unknown]
  - Mood swings [Unknown]
  - Insomnia [Unknown]
  - Flatulence [Recovered/Resolved]
  - Diarrhoea [Recovered/Resolved]
  - Insomnia [Recovered/Resolved]

NARRATIVE: CASE EVENT DATE: 20180326
